FAERS Safety Report 6442778-1 (Version None)
Quarter: 2009Q4

REPORT INFORMATION
  Report Type: 
  Country: None (occurrence: None)
  Receive Date: 20091117
  Receipt Date: 20091112
  Transmission Date: 20100525
  Serious: Yes (Death)
  Sender: FDA-Public Use
  Company Number: PHHO2009FR14128

PATIENT
  Sex: Male

DRUGS (2)
  1. RAD 666 RAD++CMAS [Suspect]
     Indication: NON-SMALL CELL LUNG CANCER
     Route: 048
  2. TARCEVA [Concomitant]
     Indication: NON-SMALL CELL LUNG CANCER
     Dosage: 150 MG DAILY
     Route: 048
     Dates: start: 20090225

REACTIONS (1)
  - DEATH [None]
